FAERS Safety Report 7943092-5 (Version None)
Quarter: 2011Q4

REPORT INFORMATION
  Report Type: 
  Country: None (occurrence: None)
  Receive Date: 20111128
  Receipt Date: 20111114
  Transmission Date: 20120403
  Serious: Yes (Other)
  Sender: FDA-Public Use
  Company Number: PHHY2011TR101992

PATIENT
  Age: 33 Year
  Sex: Female

DRUGS (4)
  1. CYCLOSPORINE [Suspect]
     Indication: BEHCET'S SYNDROME
  2. AZATHIOPRINE [Concomitant]
     Indication: BEHCET'S SYNDROME
  3. PREDNISOLONE [Concomitant]
     Indication: BEHCET'S SYNDROME
     Dosage: 10 MG, PER DAY
  4. COLCHICINE [Concomitant]
     Indication: BEHCET'S SYNDROME

REACTIONS (2)
  - BLINDNESS [None]
  - DRUG RESISTANCE [None]
